FAERS Safety Report 21482608 (Version 2)
Quarter: 2022Q4

REPORT INFORMATION
  Report Type: Spontaneous
  Country: CN (occurrence: CN)
  Receive Date: 20221020
  Receipt Date: 20221021
  Transmission Date: 20230113
  Serious: Yes (Other)
  Sender: FDA-Public Use
  Company Number: None

PATIENT
  Age: 59 Year
  Sex: Male
  Weight: 70 kg

DRUGS (4)
  1. CYCLOPHOSPHAMIDE [Suspect]
     Active Substance: CYCLOPHOSPHAMIDE
     Indication: Diffuse large B-cell lymphoma
     Dosage: (AT 09:13), 1.3 G, QD (DILUTED WITH 0.9% SODIUM CHLORIDE INJECTION 100ML)
     Route: 041
     Dates: start: 20220920, end: 20220920
  2. SODIUM CHLORIDE [Suspect]
     Active Substance: SODIUM CHLORIDE
     Indication: Medication dilution
     Dosage: (AT 09:13), 100 ML, QD (DILUTED WITH CYCLOPHOSPHAMIDE 1.3 G)
     Route: 041
     Dates: start: 20220920, end: 20220920
  3. SODIUM CHLORIDE [Suspect]
     Active Substance: SODIUM CHLORIDE
     Dosage: (AT 09:13) 20 ML, QD (DILUTED WITH VINCRISTINE 2 MG)
     Route: 042
     Dates: start: 20220920, end: 20220920
  4. VINCRISTINE SULFATE [Suspect]
     Active Substance: VINCRISTINE SULFATE
     Indication: Diffuse large B-cell lymphoma
     Dosage: (AT 09:13) 2 MG, QD (DILUTED WITH 0.9% SODIUM CHLORIDE INJECTION 20ML)
     Route: 042
     Dates: start: 20220920, end: 20220920

REACTIONS (1)
  - Myelosuppression [Recovering/Resolving]

NARRATIVE: CASE EVENT DATE: 20220922
